FAERS Safety Report 4372234-6 (Version None)
Quarter: 2004Q2

REPORT INFORMATION
  Report Type: 
  Country: None (occurrence: None)
  Receive Date: 20040603
  Receipt Date: 20040603
  Transmission Date: 20050107
  Serious: Yes (Hospitalization)
  Sender: FDA-Public Use
  Company Number: None

PATIENT
  Sex: Female

DRUGS (4)
  1. GEMCITABINE [Suspect]
     Indication: BILE DUCT CANCER
     Dosage: 1200 MG/M2 INTRAVENOUS
     Route: 042
     Dates: start: 20040511, end: 20040518
  2. ZOFRAN [Concomitant]
  3. DECADRON [Concomitant]
  4. IRINOTECAN [Suspect]
     Indication: BILE DUCT CANCER
     Dosage: 100 MG/M2 INTRAVENOUS
     Route: 042
     Dates: start: 20040511, end: 20040518

REACTIONS (5)
  - BACK PAIN [None]
  - HAEMOGLOBIN ABNORMAL [None]
  - NAUSEA [None]
  - PYREXIA [None]
  - WHITE BLOOD CELL DISORDER [None]
